FAERS Safety Report 6204115-7 (Version None)
Quarter: 2009Q2

REPORT INFORMATION
  Report Type: 
  Country: None (occurrence: None)
  Receive Date: 20090521
  Receipt Date: 20090511
  Transmission Date: 20091009
  Serious: Yes (Hospitalization)
  Sender: FDA-Public Use
  Company Number: 20090171

PATIENT
  Age: 73 Year
  Sex: Male
  Weight: 79.3 kg

DRUGS (3)
  1. ASCORBIC ACID     INJECTION, USP 500 MG/ML [Suspect]
     Indication: MYELODYSPLASTIC SYNDROME
     Dosage: 1000MG, DAYS 1-5/WK INTRAVENOUS
     Route: 042
     Dates: start: 20090302, end: 20090324
  2. TRISENOX [Suspect]
     Indication: MYELODYSPLASTIC SYNDROME
     Dosage: 0.1 MG/KG, DAYS, 1-5 WK INTRAVENOUS DRIP
     Route: 041
     Dates: start: 20090302, end: 20090324
  3. DECITABINE [Suspect]
     Indication: MYELODYSPLASTIC SYNDROME
     Dosage: 20MG/M2, DAYS 1-5 INTRAVENOUS
     Route: 042
     Dates: start: 20090302, end: 20090306

REACTIONS (7)
  - ABDOMINAL DISTENSION [None]
  - ABDOMINAL PAIN [None]
  - ANURIA [None]
  - BLOOD CREATININE INCREASED [None]
  - CARDIAC TAMPONADE [None]
  - HYPOTENSION [None]
  - PERICARDIAL EFFUSION [None]
